FAERS Safety Report 17258269 (Version 1)
Quarter: 2020Q1

REPORT INFORMATION
  Report Type: Report from Study
  Country: None (occurrence: US)
  Receive Date: 20200110
  Receipt Date: 20200110
  Transmission Date: 20200409
  Serious: Yes (Hospitalization)
  Sender: FDA-Public Use
  Company Number: US-ABBVIE-20K-163-3225192-00

PATIENT
  Age: 64 Year
  Sex: Female

DRUGS (1)
  1. HUMIRA [Suspect]
     Active Substance: ADALIMUMAB
     Indication: RHEUMATOID ARTHRITIS
     Dosage: CITRATE FREE
     Route: 058

REACTIONS (6)
  - Diverticulitis [Recovered/Resolved]
  - Gallbladder disorder [Not Recovered/Not Resolved]
  - Diverticulitis [Not Recovered/Not Resolved]
  - Colitis ischaemic [Not Recovered/Not Resolved]
  - Diverticulitis intestinal haemorrhagic [Not Recovered/Not Resolved]
  - Cholelithiasis [Not Recovered/Not Resolved]

NARRATIVE: CASE EVENT DATE: 201911
